FAERS Safety Report 6111609-1 (Version None)
Quarter: 2009Q1

REPORT INFORMATION
  Report Type: 
  Country: None (occurrence: None)
  Receive Date: 20090310
  Receipt Date: 20090310
  Transmission Date: 20090719
  Serious: Yes (Hospitalization)
  Sender: FDA-Public Use
  Company Number: None

PATIENT
  Sex: Female
  Weight: 84 kg

DRUGS (7)
  1. CARBOPLATIN [Suspect]
     Dosage: 571 MG
  2. TAXOL [Suspect]
     Dosage: 319 MG
  3. ASPIRIN [Concomitant]
  4. LEVOXYL [Concomitant]
  5. LIPITOR [Concomitant]
  6. LOPRESSOR [Concomitant]
  7. LOTREL [Concomitant]

REACTIONS (1)
  - PULMONARY EMBOLISM [None]
